FAERS Safety Report 24963033 (Version 1)
Quarter: 2025Q1

REPORT INFORMATION
  Report Type: Spontaneous
  Country: ES (occurrence: ES)
  Receive Date: 20250213
  Receipt Date: 20250213
  Transmission Date: 20250408
  Serious: Yes (Hospitalization)
  Sender: MERCK KGAA
  Company Number: ES-Merck Healthcare KGaA-2025005965

PATIENT
  Age: 70 Year
  Sex: Female

DRUGS (9)
  1. LEVOTHYROXINE SODIUM [Suspect]
     Active Substance: LEVOTHYROXINE SODIUM
     Indication: Hypothyroidism
  2. SIMVASTATIN [Concomitant]
     Active Substance: SIMVASTATIN
     Indication: Product used for unknown indication
  3. DEXKETOPROFEN TROMETAMOL [Concomitant]
     Active Substance: DEXKETOPROFEN TROMETAMOL
     Indication: Product used for unknown indication
  4. CALCIFEDIOL [Concomitant]
     Active Substance: CALCIFEDIOL
     Indication: Product used for unknown indication
  5. FERROUS SULFATE [Concomitant]
     Active Substance: FERROUS SULFATE
     Indication: Product used for unknown indication
  6. PAROXETINE [Concomitant]
     Active Substance: PAROXETINE
     Indication: Product used for unknown indication
  7. OMEPRAZOLE [Concomitant]
     Active Substance: OMEPRAZOLE
     Indication: Product used for unknown indication
  8. AMITRIPTYLINE HYDROCHLORIDE [Concomitant]
     Active Substance: AMITRIPTYLINE HYDROCHLORIDE
     Indication: Product used for unknown indication
  9. ZOLMITRIPTAN [Concomitant]
     Active Substance: ZOLMITRIPTAN
     Indication: Product used for unknown indication

REACTIONS (12)
  - Gastroenteritis [Unknown]
  - Dysentery [Unknown]
  - Diarrhoea haemorrhagic [Unknown]
  - Hypophagia [Unknown]
  - Asthenia [Unknown]
  - Anal sphincter atony [Unknown]
  - Sleep disorder [Unknown]
  - C-reactive protein increased [Unknown]
  - Blood potassium decreased [Unknown]
  - Neutrophilia [Unknown]
  - White blood cell count increased [Unknown]
  - Pyrexia [Unknown]
